FAERS Safety Report 20790151 (Version 1)
Quarter: 2022Q2

REPORT INFORMATION
  Report Type: Spontaneous
  Country: US (occurrence: US)
  Receive Date: 20220505
  Receipt Date: 20220505
  Transmission Date: 20220721
  Serious: No
  Sender: FDA-Public Use
  Company Number: US-009507513-2204USA005299

PATIENT
  Sex: Female

DRUGS (1)
  1. EMEND [Suspect]
     Active Substance: APREPITANT
     Indication: Nausea
     Dosage: 1 DAILY POST CHEMOTHERAPY
     Route: 048
     Dates: start: 20220329

REACTIONS (5)
  - Nausea [Recovered/Resolved]
  - Product dose omission issue [Unknown]
  - Product physical issue [Unknown]
  - Product blister packaging issue [Unknown]
  - Poor quality product administered [Unknown]

NARRATIVE: CASE EVENT DATE: 20220101
